FAERS Safety Report 21583425 (Version 1)
Quarter: 2022Q4

REPORT INFORMATION
  Report Type: Spontaneous
  Country: US (occurrence: None)
  Receive Date: 20221110
  Receipt Date: 20221110
  Transmission Date: 20230113
  Serious: No
  Sender: FDA-Public Use
  Company Number: None

PATIENT
  Sex: Female

DRUGS (1)
  1. LENALIDOMIDE [Suspect]
     Active Substance: LENALIDOMIDE
     Indication: Plasma cell myeloma
     Dosage: 10MG ONCE DAILY BY MOUTH?
     Route: 048
     Dates: start: 20220809

REACTIONS (4)
  - Rash [None]
  - Ageusia [None]
  - Hypoaesthesia [None]
  - Product substitution issue [None]
